FAERS Safety Report 15600885 (Version 8)
Quarter: 2022Q4

REPORT INFORMATION
  Report Type: Other
  Country: CA (occurrence: None)
  Receive Date: 20181109
  Receipt Date: 20221107
  Transmission Date: 20230112
  Serious: No
  Sender: FDA-Public Use
  Company Number: CA-ROCHE-2123224

PATIENT
  Age: 37 Year
  Sex: Female

DRUGS (8)
  1. OCREVUS [Suspect]
     Active Substance: OCRELIZUMAB
     Indication: Primary progressive multiple sclerosis
     Dosage: 300 MG IV DAY 0 AND DAY 14, 600 MG IV Q 6 MONTHS
     Route: 042
     Dates: start: 20180509
  2. OCREVUS [Suspect]
     Active Substance: OCRELIZUMAB
     Route: 042
     Dates: start: 20180523
  3. HYDROCORTISONE VALERATE [Concomitant]
     Active Substance: HYDROCORTISONE VALERATE
     Dosage: PT TOOK IT FOR 5 DAYS
     Dates: start: 201805
  4. PULMICORT TURBUHALER [Concomitant]
     Active Substance: BUDESONIDE
     Dosage: ONGOING;0.5MG/ML TWICE DAILY
     Dates: start: 201805
  5. VITAMIN D3 [Concomitant]
     Active Substance: CHOLECALCIFEROL
     Dosage: 3000 IU ONCE DAILY
  6. OMEGA 3 [Concomitant]
     Active Substance: CAPSAICIN
     Dosage: ONCE OR TWICE PER WEEK
  7. DALFAMPRIDINE [Concomitant]
     Active Substance: DALFAMPRIDINE
  8. MYRBETRIQ [Concomitant]
     Active Substance: MIRABEGRON

REACTIONS (8)
  - Infusion related reaction [Recovered/Resolved]
  - Lip erythema [Not Recovered/Not Resolved]
  - Lip swelling [Not Recovered/Not Resolved]
  - Feeling hot [Recovering/Resolving]
  - Depression [Not Recovered/Not Resolved]
  - Lip dry [Recovered/Resolved]
  - Urinary tract infection [Not Recovered/Not Resolved]
  - Fungal infection [Recovering/Resolving]

NARRATIVE: CASE EVENT DATE: 20180509
